FAERS Safety Report 4846235-5 (Version None)
Quarter: 2005Q4

REPORT INFORMATION
  Report Type: 
  Country: None (occurrence: None)
  Receive Date: 20051202
  Receipt Date: 20051202
  Transmission Date: 20060501
  Serious: Yes (Hospitalization)
  Sender: FDA-Public Use
  Company Number: None

PATIENT
  Sex: Male
  Weight: 86.637 kg

DRUGS (1)
  1. INTERFERON ALPHACON [Suspect]
     Indication: HEPATITIS C
     Dosage: DAILY 15 MCG
     Dates: start: 20050801, end: 20051001

REACTIONS (4)
  - AGITATION [None]
  - DEPRESSION [None]
  - INTENTIONAL SELF-INJURY [None]
  - LOSS OF CONSCIOUSNESS [None]
